FAERS Safety Report 8873280 (Version 1)
Quarter: 2012Q4

REPORT INFORMATION
  Report Type: 
  Country: US (occurrence: US)
  Receive Date: 20121029
  Receipt Date: 20121029
  Transmission Date: 20130627
  Serious: Yes (Other)
  Sender: FDA-Public Use
  Company Number: CHPA2012US021148

PATIENT
  Sex: Female

DRUGS (9)
  1. PREVACID 24HR 15MG [Suspect]
     Indication: GASTROINTESTINAL DISORDER
     Dosage: 15 mg, QD
     Route: 048
  2. PREVACID 24HR 15MG [Suspect]
     Dosage: 30 mg, QD
     Route: 048
     Dates: start: 2009
  3. DRUG THERAPY NOS [Concomitant]
     Indication: GASTROINTESTINAL DISORDER
     Dosage: Unk, QD
  4. PROBIOTIC                          /07343501/ [Concomitant]
     Route: 048
  5. CARAFATE [Concomitant]
     Route: 048
  6. ALIGN [Concomitant]
     Route: 048
  7. ACIDOPHILIS [Concomitant]
     Route: 048
  8. PHAZYME [Concomitant]
     Route: 048
  9. IMITREX ^GLAXO^ [Concomitant]
     Route: 048

REACTIONS (5)
  - Loss of consciousness [Not Recovered/Not Resolved]
  - Off label use [Unknown]
  - Therapeutic response unexpected [Unknown]
  - Prescribed overdose [Unknown]
  - Incorrect drug administration duration [Unknown]
